FAERS Safety Report 23854359 (Version 1)
Quarter: 2024Q2

REPORT INFORMATION
  Report Type: Spontaneous
  Country: BR (occurrence: BR)
  Receive Date: 20240514
  Receipt Date: 20240514
  Transmission Date: 20240716
  Serious: Yes (Other)
  Sender: FDA-Public Use
  Company Number: BR-TAKEDA-2024TUS047150

PATIENT
  Age: 45 Year
  Sex: Male
  Weight: 85 kg

DRUGS (4)
  1. MESALAMINE [Suspect]
     Active Substance: MESALAMINE
     Indication: Diverticulum
     Dosage: 800 MILLIGRAM, QD
     Route: 048
  2. MESALAMINE [Suspect]
     Active Substance: MESALAMINE
     Indication: Diverticulitis
  3. XARELTO [Concomitant]
     Active Substance: RIVAROXABAN
     Dosage: UNK
  4. PROPAFENONE [Concomitant]
     Active Substance: PROPAFENONE
     Dosage: UNK

REACTIONS (4)
  - Atrial fibrillation [Unknown]
  - Product residue present [Unknown]
  - Drug ineffective [Unknown]
  - Hypertension [Unknown]

NARRATIVE: CASE EVENT DATE: 20240508
